FAERS Safety Report 8212270-2 (Version None)
Quarter: 2012Q1

REPORT INFORMATION
  Report Type: 
  Country: None (occurrence: None)
  Receive Date: 20120315
  Receipt Date: 20120301
  Transmission Date: 20120608
  Serious: Yes (Other)
  Sender: FDA-Public Use
  Company Number: US-ROCHE-1045209

PATIENT
  Age: 36 Year

DRUGS (2)
  1. LAPATINIB [Suspect]
     Indication: PRODUCT USED FOR UNKNOWN INDICATION
  2. HERCEPTIN [Suspect]
     Indication: NEOPLASM MALIGNANT

REACTIONS (2)
  - METASTASES TO CENTRAL NERVOUS SYSTEM [None]
  - TREATMENT FAILURE [None]
